FAERS Safety Report 10969164 (Version 1)
Quarter: 2015Q1

REPORT INFORMATION
  Report Type: Spontaneous
  Country: US (occurrence: None)
  Receive Date: 20150330
  Receipt Date: 20150330
  Transmission Date: 20150721
  Serious: Yes (Hospitalization)
  Sender: FDA-Public Use
  Company Number: None

PATIENT
  Age: 50 Year
  Sex: Female

DRUGS (1)
  1. PEGASYS [Suspect]
     Active Substance: PEGINTERFERON ALFA-2A
     Indication: HEPATITIS C
     Dosage: INJECTABLE
     Route: 058
     Dates: start: 20150207

REACTIONS (4)
  - Peripheral swelling [None]
  - Joint swelling [None]
  - Local swelling [None]
  - Thrombosis [None]

NARRATIVE: CASE EVENT DATE: 20150318
